FAERS Safety Report 24250430 (Version 1)
Quarter: 2024Q3

REPORT INFORMATION
  Report Type: Spontaneous
  Country: US (occurrence: None)
  Receive Date: 20240826
  Receipt Date: 20240826
  Transmission Date: 20241016
  Serious: No
  Sender: Public
  Company Number: None

PATIENT
  Age: 57 Year
  Sex: Male

DRUGS (1)
  1. HUMIRA [Suspect]
     Active Substance: ADALIMUMAB
     Indication: Psoriasis
     Dosage: INJECT 80MG (2 PENS) SUBCUTANEOUSLY ON DAY 1, 40MG (1 PEN) ON DAY 8 THEN 40MG EVERY OTHER
     Route: 058
     Dates: start: 202408

REACTIONS (2)
  - Illness [None]
  - Therapy interrupted [None]
